FAERS Safety Report 9347385 (Version 1)
Quarter: 2013Q2

REPORT INFORMATION
  Report Type: Spontaneous
  Country: CN (occurrence: CN)
  Receive Date: 20130613
  Receipt Date: 20130613
  Transmission Date: 20140414
  Serious: Yes (Life-Threatening, Other)
  Sender: FDA-Public Use
  Company Number: CN-BAXTER-2013BAX020893

PATIENT
  Age: 35 Year
  Sex: Female
  Weight: 55 kg

DRUGS (4)
  1. ENDOXAN [Suspect]
     Indication: BREAST CANCER
     Dosage: 0.8G PLUS NS 40ML
     Route: 042
     Dates: start: 20120404, end: 20120404
  2. 0.9% SODIUM CHLORIDE INJECTION [Suspect]
     Indication: BREAST CANCER
     Route: 041
  3. PALONOSETRON HYDROCHLORIDE [Suspect]
     Indication: BREAST CANCER
     Dosage: 0.25MG PLUS NS 100ML GTT
     Route: 041
  4. EPIRUBICIN [Suspect]
     Indication: BREAST CANCER
     Dosage: 140MG PLUS NS 100ML GTT
     Route: 041

REACTIONS (7)
  - Nausea [Recovering/Resolving]
  - Vomiting [Recovering/Resolving]
  - Mucosal ulceration [Recovering/Resolving]
  - Rash vesicular [Recovering/Resolving]
  - White blood cell count decreased [Recovering/Resolving]
  - Initial insomnia [Unknown]
  - Aphagia [Unknown]
